FAERS Safety Report 18092041 (Version 3)
Quarter: 2021Q1

REPORT INFORMATION
  Report Type: Spontaneous
  Country: US (occurrence: US)
  Receive Date: 20200730
  Receipt Date: 20210319
  Transmission Date: 20210419
  Serious: Yes (Death, Other)
  Sender: FDA-Public Use
  Company Number: US-GLAXOSMITHKLINE-US2020146715

PATIENT
  Sex: Male

DRUGS (9)
  1. RANITIDINE CAPSULE [Suspect]
     Active Substance: RANITIDINE
     Indication: DYSPEPSIA
     Dosage: 150 MG, TWICE DAILY
     Route: 065
     Dates: start: 200909, end: 201702
  2. ZANTAC [Suspect]
     Active Substance: RANITIDINE HYDROCHLORIDE
     Route: 065
     Dates: start: 20060115, end: 20200115
  3. RANITIDINE CAPSULE [Suspect]
     Active Substance: RANITIDINE
     Indication: DYSPEPSIA
  4. RANITIDINE. [Suspect]
     Active Substance: RANITIDINE
     Indication: DYSPEPSIA
  5. RANITIDINE CAPSULE [Suspect]
     Active Substance: RANITIDINE
     Indication: DYSPEPSIA
     Dosage: 150 MG, TWICE DAILY
     Route: 065
     Dates: start: 200608, end: 200909
  6. RANITIDINE. [Suspect]
     Active Substance: RANITIDINE
     Indication: DYSPEPSIA
     Dosage: 150 MG, TWICE DAILY
     Route: 065
     Dates: start: 200909, end: 201702
  7. RANITIDINE CAPSULE [Suspect]
     Active Substance: RANITIDINE
     Indication: DYSPEPSIA
  8. ZANTAC [Suspect]
     Active Substance: RANITIDINE HYDROCHLORIDE
     Indication: DYSPEPSIA
     Dosage: 150 MG, TWICE DAILY
     Route: 065
     Dates: start: 200608, end: 200909
  9. ZANTAC [Suspect]
     Active Substance: RANITIDINE HYDROCHLORIDE
     Indication: DYSPEPSIA

REACTIONS (5)
  - Oesophageal carcinoma [Unknown]
  - Oesophageal carcinoma [Fatal]
  - Neoplasm malignant [Fatal]
  - Lung neoplasm malignant [Unknown]
  - Brain neoplasm malignant [Fatal]
